FAERS Safety Report 15527117 (Version 2)
Quarter: 2018Q4

REPORT INFORMATION
  Report Type: Report from Study
  Country: MX (occurrence: MX)
  Receive Date: 20181018
  Receipt Date: 20181101
  Transmission Date: 20190205
  Serious: No
  Sender: FDA-Public Use
  Company Number: PHHY2018MX130437

PATIENT
  Sex: Male

DRUGS (2)
  1. RAFITEX [Concomitant]
     Indication: PRODUCT USED FOR UNKNOWN INDICATION
     Dosage: UNK
     Route: 065
  2. DIOVAN [Suspect]
     Active Substance: VALSARTAN
     Indication: HYPERTENSION
     Dosage: 1 DF, QD (2 AND ? YEARS AGO)
     Route: 048

REACTIONS (3)
  - Epistaxis [Unknown]
  - Blood pressure increased [Unknown]
  - Drug ineffective [Unknown]
